FAERS Safety Report 5386105-X (Version None)
Quarter: 2007Q3

REPORT INFORMATION
  Report Type: 
  Country: None (occurrence: None)
  Receive Date: 20070710
  Receipt Date: 20070627
  Transmission Date: 20080115
  Serious: Yes (Hospitalization)
  Sender: FDA-Public Use
  Company Number: 02100-JPN-07-0320

PATIENT
  Age: 75 Year
  Sex: Male

DRUGS (3)
  1. CILOSTAZOL [Suspect]
     Indication: CEREBRAL INFARCTION
     Dosage: 100 MG/200 MG, ORAL
     Route: 048
     Dates: start: 20060622, end: 20060705
  2. CILOSTAZOL [Suspect]
     Indication: CEREBRAL INFARCTION
     Dosage: 100 MG/200 MG, ORAL
     Route: 048
     Dates: start: 20060606
  3. ASPIRIN ENCAPSULATED [Concomitant]

REACTIONS (3)
  - DIZZINESS [None]
  - GASTRIC ULCER [None]
  - MELAENA [None]
